FAERS Safety Report 24409437 (Version 2)
Quarter: 2025Q1

REPORT INFORMATION
  Report Type: Spontaneous
  Country: JP (occurrence: JP)
  Receive Date: 20241008
  Receipt Date: 20250212
  Transmission Date: 20250409
  Serious: Yes (Death, Hospitalization, Other)
  Sender: TAKEDA
  Company Number: JP-TAKEDA-2024TJP014544

PATIENT
  Age: 75 Year
  Sex: Male

DRUGS (1)
  1. ALUNBRIG [Suspect]
     Active Substance: BRIGATINIB
     Indication: Lung neoplasm malignant
     Dates: start: 20230614, end: 20240321

REACTIONS (6)
  - Pneumonia aspiration [Fatal]
  - Delirium [Unknown]
  - Feeding disorder [Unknown]
  - Mobility decreased [Unknown]
  - Condition aggravated [Fatal]
  - Anger [Unknown]

NARRATIVE: CASE EVENT DATE: 20240201
